FAERS Safety Report 6276518-6 (Version None)
Quarter: 2009Q3

REPORT INFORMATION
  Report Type: 
  Country: None (occurrence: None)
  Receive Date: 20090720
  Receipt Date: 20090708
  Transmission Date: 20100115
  Serious: Yes (Hospitalization)
  Sender: FDA-Public Use
  Company Number: 8048765

PATIENT
  Age: 22 Year
  Sex: Male

DRUGS (1)
  1. KEPPRA [Suspect]
     Dates: start: 20090301

REACTIONS (1)
  - PNEUMOTHORAX [None]
